FAERS Safety Report 4746502-X (Version None)
Quarter: 2005Q3

REPORT INFORMATION
  Report Type: 
  Country: None (occurrence: None)
  Receive Date: 20050815
  Receipt Date: 20050803
  Transmission Date: 20060218
  Serious: Yes (Hospitalization)
  Sender: FDA-Public Use
  Company Number: WAES 0507GBR00062

PATIENT
  Age: 61 Year
  Sex: Male

DRUGS (8)
  1. ZOCOR [Suspect]
     Indication: HYPERCHOLESTEROLAEMIA
     Dosage: 40 MG/DAILY
     Dates: start: 20050519, end: 20050701
  2. ACETAMINOPHEN AND CODEINE PHOSPHATE [Concomitant]
  3. AMLODIPINE BESYLATE [Concomitant]
  4. ASPIRIN [Concomitant]
  5. IPRATROPIUM BROMIDE [Concomitant]
  6. ISOSORBIDE MONONITRATE [Concomitant]
  7. LISINOPRIL [Concomitant]
  8. SIMVASTATIN [Concomitant]

REACTIONS (4)
  - BURNING SENSATION [None]
  - CELLULITIS [None]
  - PARAESTHESIA [None]
  - RASH [None]
